FAERS Safety Report 11140998 (Version 1)
Quarter: 2015Q2

REPORT INFORMATION
  Report Type: Report from Study
  Country: HU (occurrence: HU)
  Receive Date: 20150527
  Receipt Date: 20150527
  Transmission Date: 20150821
  Serious: Yes (Death, Other)
  Sender: FDA-Public Use
  Company Number: PHHY2015HU054758

PATIENT
  Age: 71 Year
  Sex: Male

DRUGS (2)
  1. SEEBRI BREEZHALER [Suspect]
     Active Substance: GLYCOPYRROLATE
     Indication: CHRONIC OBSTRUCTIVE PULMONARY DISEASE
     Dosage: UNK, QD
     Route: 055
     Dates: start: 20150324
  2. ONBREZ BREEZHALER [Suspect]
     Active Substance: INDACATEROL
     Indication: CHRONIC OBSTRUCTIVE PULMONARY DISEASE
     Dosage: UNK, QD
     Route: 055
     Dates: start: 20150324

REACTIONS (3)
  - Lung disorder [Unknown]
  - Pulmonary embolism [Fatal]
  - Lung neoplasm [Unknown]

NARRATIVE: CASE EVENT DATE: 20150406
